FAERS Safety Report 24438496 (Version 1)
Quarter: 2024Q4

REPORT INFORMATION
  Report Type: Spontaneous
  Country: US (occurrence: None)
  Receive Date: 20241015
  Receipt Date: 20241015
  Transmission Date: 20250114
  Serious: Yes (Hospitalization)
  Sender: Public
  Company Number: None

PATIENT
  Age: 9 Year
  Sex: Male
  Weight: 38.4 kg

DRUGS (8)
  1. BLEOMYCIN [Suspect]
     Active Substance: BLEOMYCIN SULFATE
     Dosage: OTHER QUANTITY : 10 UNIT;?
     Dates: end: 20241002
  2. CYCLOPHOSPHAMIDE [Suspect]
     Active Substance: CYCLOPHOSPHAMIDE
     Dates: end: 20240925
  3. DOXORUBICIN HYDROCHLORIDE [Suspect]
     Active Substance: DOXORUBICIN HYDROCHLORIDE
     Dates: end: 20240925
  4. ETOPOSIDE [Suspect]
     Active Substance: ETOPOSIDE
     Dates: end: 20240927
  5. NEULASTA [Suspect]
     Active Substance: PEGFILGRASTIM
     Dates: end: 20241002
  6. PREDNISONE [Suspect]
     Active Substance: PREDNISONE
     Dates: end: 20240927
  7. PROCARBAZINE [Suspect]
     Active Substance: PROCARBAZINE
     Dates: end: 20240926
  8. VINCRISTINE SULFATE [Suspect]
     Active Substance: VINCRISTINE SULFATE
     Dates: end: 20241002

REACTIONS (2)
  - Pain in extremity [None]
  - Pain [None]

NARRATIVE: CASE EVENT DATE: 20241007
